FAERS Safety Report 5630446-5 (Version None)
Quarter: 2008Q1

REPORT INFORMATION
  Report Type: 
  Country: None (occurrence: None)
  Receive Date: 20080219
  Receipt Date: 20080208
  Transmission Date: 20080703
  Serious: Yes (Other)
  Sender: FDA-Public Use
  Company Number: US-ROCHE-546250

PATIENT
  Age: 58 Year
  Sex: Female

DRUGS (6)
  1. BONIVA [Suspect]
     Indication: OSTEOPOROSIS
     Dosage: THE PATIENT WAS TAKING BONIVA ONCE MONTHLY FOR ABOUT A YEAR.
     Route: 065
     Dates: start: 20070101
  2. PLAQUENIL [Concomitant]
  3. PROZAC [Concomitant]
  4. UNSPECIFIED MEDICATIONS [Concomitant]
     Dosage: THE PATIENT WAS TAKING AN UNSPECIFIED PAIN MEDICATION.
  5. POTASSIUM CHLORIDE [Concomitant]
  6. LORCET [Concomitant]

REACTIONS (10)
  - ABDOMINAL PAIN UPPER [None]
  - DIARRHOEA [None]
  - DYSPHAGIA [None]
  - HYPOAESTHESIA [None]
  - MUSCULAR WEAKNESS [None]
  - PHARYNGEAL ULCERATION [None]
  - PNEUMONIA [None]
  - SKIN ULCER [None]
  - THROAT TIGHTNESS [None]
  - WEIGHT DECREASED [None]
